FAERS Safety Report 7988212-1 (Version None)
Quarter: 2011Q4

REPORT INFORMATION
  Report Type: 
  Country: None (occurrence: None)
  Receive Date: 20111216
  Receipt Date: 20110705
  Transmission Date: 20120403
  Serious: No
  Sender: FDA-Public Use
  Company Number: US-BRISTOL-MYERS SQUIBB COMPANY-15810310

PATIENT
  Age: 69 Year

DRUGS (8)
  1. METFORMIN HCL [Suspect]
  2. DIPHENHYDRAMINE HCL [Suspect]
  3. FLUVOXAMINE MALEATE [Suspect]
     Dosage: FLUVOXAMINE LOVACH
  4. ABILIFY [Suspect]
     Indication: BIPOLAR DISORDER
     Dosage: SPLITTING THE PILL IN HALF
     Route: 048
  5. VIAGRA [Suspect]
  6. TOPAMAX [Suspect]
  7. LUNESTA [Suspect]
  8. LORAZEPAM [Suspect]

REACTIONS (2)
  - WRONG TECHNIQUE IN DRUG USAGE PROCESS [None]
  - BLOOD GLUCOSE INCREASED [None]
